FAERS Safety Report 9325944 (Version 1)
Quarter: 2013Q2

REPORT INFORMATION
  Report Type: Spontaneous
  Country: US (occurrence: US)
  Receive Date: 20130604
  Receipt Date: 20130604
  Transmission Date: 20140414
  Serious: Yes (Other)
  Sender: FDA-Public Use
  Company Number: US-PFIZER INC-2013166995

PATIENT
  Age: 59 Year
  Sex: Male
  Weight: 79.37 kg

DRUGS (9)
  1. VIAGRA [Suspect]
     Indication: ERECTILE DYSFUNCTION
     Dosage: 100 MG, AS NEEDED
  2. METFORMIN [Concomitant]
     Indication: DIABETES MELLITUS
     Dosage: 1000 MG, 2X/DAY
  3. FAMOTIDINE [Concomitant]
     Dosage: 20 MG, 1X/DAY
  4. FOLIC ACID [Concomitant]
     Dosage: 1 MG, 1X/DAY
  5. LISINOPRIL [Concomitant]
     Indication: HYPERTENSION
     Dosage: 40 MG, 1X/DAY
  6. PRAVASTATIN [Concomitant]
     Indication: BLOOD CHOLESTEROL INCREASED
     Dosage: 40 MG, 1X/DAY
  7. AMLODIPINE BESILATE [Concomitant]
     Indication: BLOOD CHOLESTEROL INCREASED
     Dosage: 10 MG, 1X/DAY
  8. BABY ASPIRIN [Concomitant]
     Dosage: 81 MG, 1X/DAY
  9. IRON [Concomitant]
     Indication: ANAEMIA
     Dosage: 65 MG, 1X/DAY

REACTIONS (2)
  - Prostate cancer [Recovered/Resolved]
  - Bladder cancer [Recovered/Resolved]
